FAERS Safety Report 8171901-6 (Version None)
Quarter: 2012Q1

REPORT INFORMATION
  Report Type: 
  Country: None (occurrence: None)
  Receive Date: 20120228
  Receipt Date: 20120216
  Transmission Date: 20120608
  Serious: Yes (Other)
  Sender: FDA-Public Use
  Company Number: US-COVIDIEN/TYCO HEALTHCARE/MALLINCKRODT-T201200648

PATIENT
  Age: 44 Year
  Sex: Female

DRUGS (20)
  1. FENTANYL CITRATE [Suspect]
     Indication: ANAESTHESIA
     Dosage: 100 UG
     Route: 042
  2. DULOXETIME HYDROCHLORIDE [Suspect]
     Dosage: UNK
  3. MIDAZOLAM [Concomitant]
     Dosage: 5 MG, UNK
     Route: 042
  4. HYDROMORPHONE HCL [Suspect]
     Indication: ANAESTHESIA
     Dosage: 2 MG, UNK
     Route: 042
  5. LAMOTRIGINE [Concomitant]
     Dosage: UNK
  6. ONDANSETRON [Suspect]
     Indication: VOMITING
  7. CLONAZEPAM [Concomitant]
     Dosage: UNK
  8. TOPIRAMATE [Concomitant]
     Dosage: UNK
  9. DESFLURANE [Concomitant]
     Dosage: DESFLURANE IN OXYGEN/AIR (O2 50%)
  10. LACTATED RINGER'S [Concomitant]
     Dosage: 2.9 L, UNK
     Route: 042
  11. NEOSTIGMINE [Concomitant]
     Indication: NEUROMUSCULAR BLOCKADE REVERSAL
     Dosage: 5 MG, UNK
     Route: 042
  12. ONDANSETRON [Suspect]
     Indication: NAUSEA
     Dosage: 4 MG, UNK
     Route: 042
  13. ROCURONIUM BROMIDE [Concomitant]
     Indication: ANAESTHESIA
     Dosage: 50 MG, UNK
  14. LITHIUM CARBONATE [Suspect]
     Dosage: UNK
  15. QUETIAPINE [Suspect]
     Dosage: UNK
  16. PROPOFOL [Concomitant]
     Indication: ANAESTHESIA
     Dosage: 120 MG, UNK
  17. ROCURONIUM BROMIDE [Concomitant]
     Dosage: 20 MG BOLUS
     Route: 042
  18. HEXTEND [Concomitant]
     Dosage: 0.5 L, UNK
     Route: 042
  19. GLYCOPYRROLATE                     /00196202/ [Concomitant]
     Indication: NEUROMUSCULAR BLOCKADE REVERSAL
     Dosage: 0.7 MG, UNK
     Route: 042
  20. FENTANYL CITRATE [Suspect]
     Dosage: 250 UG
     Route: 042

REACTIONS (3)
  - SEROTONIN SYNDROME [None]
  - DISTURBANCE IN ATTENTION [None]
  - APHASIA [None]
